FAERS Safety Report 10974791 (Version 1)
Quarter: 2015Q1

REPORT INFORMATION
  Report Type: Spontaneous
  Country: None (occurrence: None)
  Receive Date: 20150226
  Receipt Date: 20150226
  Transmission Date: 20150721
  Serious: No
  Sender: FDA-Public Use
  Company Number: TPA2009A04229

PATIENT
  Age: 57 Year
  Sex: Female
  Weight: 81.65 kg

DRUGS (2)
  1. COLCHICINE (COLCHICINE) [Suspect]
     Active Substance: COLCHICINE
     Indication: GOUT
     Route: 048
     Dates: start: 20091103
  2. ULORIC [Suspect]
     Active Substance: FEBUXOSTAT
     Indication: GOUT
     Route: 048
     Dates: start: 200911

REACTIONS (1)
  - Pollakiuria [None]

NARRATIVE: CASE EVENT DATE: 2009
